FAERS Safety Report 23310205 (Version 2)
Quarter: 2024Q1

REPORT INFORMATION
  Report Type: Report from Study
  Country: CA (occurrence: CA)
  Receive Date: 20231218
  Receipt Date: 20240130
  Transmission Date: 20240410
  Serious: Yes (Hospitalization, Disabling, Other)
  Sender: FDA-Public Use
  Company Number: CA-APOTEX-2023AP018097

PATIENT
  Age: 83 Year
  Sex: Male

DRUGS (6)
  1. LENALIDOMIDE [Suspect]
     Active Substance: LENALIDOMIDE
     Indication: Plasma cell myeloma
     Dosage: 10 MILLIGRAM, QD X 21/28 DAYS
     Route: 048
     Dates: start: 201704
  2. LENALIDOMIDE [Suspect]
     Active Substance: LENALIDOMIDE
     Dosage: 10 MILLIGRAM, QD X 21 DAYS
     Route: 048
     Dates: start: 20211223, end: 202311
  3. IXAZOMIB [Concomitant]
     Active Substance: IXAZOMIB
     Indication: Plasma cell myeloma
     Dosage: 3 MILLIGRAM
     Route: 048
     Dates: start: 2017, end: 2023
  4. IXAZOMIB [Concomitant]
     Active Substance: IXAZOMIB
     Dosage: 8 MILLIGRAM
     Route: 048
     Dates: start: 2023, end: 202308
  5. DEXAMETHASONE [Concomitant]
     Active Substance: DEXAMETHASONE
     Indication: Plasma cell myeloma
     Dosage: 16 MILLIGRAM
     Route: 048
     Dates: start: 2017, end: 2023
  6. DEXAMETHASONE [Concomitant]
     Active Substance: DEXAMETHASONE
     Dosage: 12 MILLIGRAM
     Route: 048
     Dates: start: 2023, end: 202304

REACTIONS (2)
  - Ischaemic stroke [Recovered/Resolved]
  - Off label use [Unknown]

NARRATIVE: CASE EVENT DATE: 20211223
